FAERS Safety Report 18309385 (Version 1)
Quarter: 2020Q3

REPORT INFORMATION
  Report Type: Spontaneous
  Country: US (occurrence: US)
  Receive Date: 20200925
  Receipt Date: 20200925
  Transmission Date: 20201103
  Serious: No
  Sender: FDA-Public Use
  Company Number: US-AUROBINDO-AUR-APL-2020-035650

PATIENT
  Age: 41 Year
  Sex: Male

DRUGS (1)
  1. OMEPRAZOLE 20 MG DELAYED RELEASE TABLETS [Suspect]
     Active Substance: OMEPRAZOLE
     Indication: GASTROOESOPHAGEAL REFLUX DISEASE
     Dosage: 20 MILLIGRAM, ONCE A DAY (1 TABLET PER DAY)
     Route: 065
     Dates: start: 20200711, end: 20200712

REACTIONS (2)
  - Product substitution issue [Unknown]
  - Abdominal rigidity [Not Recovered/Not Resolved]
